FAERS Safety Report 7756929-X (Version None)
Quarter: 2011Q3

REPORT INFORMATION
  Report Type: 
  Country: None (occurrence: None)
  Receive Date: 20110916
  Receipt Date: 20110908
  Transmission Date: 20111222
  Serious: Yes (Hospitalization)
  Sender: FDA-Public Use
  Company Number: FR-GLAXOSMITHKLINE-B0737484A

PATIENT
  Sex: Female

DRUGS (2)
  1. CHLORAMBUCIL [Suspect]
     Indication: CHRONIC LYMPHOCYTIC LEUKAEMIA
     Dosage: 36MG EVERY TWO WEEKS
     Route: 048
     Dates: start: 20101115
  2. RITUXIMAB [Suspect]
     Indication: CHRONIC LYMPHOCYTIC LEUKAEMIA
     Dosage: 500MGM2 MONTHLY
     Route: 042
     Dates: start: 20101115

REACTIONS (4)
  - VOMITING [None]
  - NEPHROLITHIASIS [None]
  - PYREXIA [None]
  - CONSTIPATION [None]
